FAERS Safety Report 4685174-X (Version None)
Quarter: 2005Q2

REPORT INFORMATION
  Report Type: 
  Country: None (occurrence: None)
  Receive Date: 20050608
  Receipt Date: 20050425
  Transmission Date: 20051028
  Serious: Yes (Hospitalization, Other)
  Sender: FDA-Public Use
  Company Number: 200513640GDDC

PATIENT
  Age: 50 Year
  Sex: Female
  Weight: 60.9 kg

DRUGS (8)
  1. LANTUS [Suspect]
     Indication: DIABETES MELLITUS
     Dosage: DOSE UNIT: UNITS
     Route: 058
  2. ACTRAPID [Suspect]
     Indication: DIABETES MELLITUS
     Dosage: DOSE: UNK
     Route: 058
  3. METFORMIN [Suspect]
     Indication: DIABETES MELLITUS
     Dosage: DOSE: UNK
     Route: 048
  4. ROSIGLITAZONE [Suspect]
     Indication: DIABETES MELLITUS
     Dosage: DOSE: UNK
     Route: 048
  5. REGULAR INSULIN [Suspect]
     Indication: DIABETES MELLITUS
     Dosage: DOSE: INSULIN INFUSION 2-4 IU/HOUR
     Route: 042
  6. ESOMEPRAZOL [Concomitant]
  7. METOPROLOL [Concomitant]
  8. LEVOFLOXACIN [Concomitant]
     Dates: end: 20050405

REACTIONS (8)
  - CATHETER RELATED INFECTION [None]
  - DIABETES MELLITUS INADEQUATE CONTROL [None]
  - GLYCOSYLATED HAEMOGLOBIN INCREASED [None]
  - HYPERGLYCAEMIA [None]
  - HYPOGLYCAEMIA [None]
  - INFECTION [None]
  - MALABSORPTION FROM INJECTION SITE [None]
  - SEPSIS [None]
